FAERS Safety Report 9681121 (Version 1)
Quarter: 2013Q4

REPORT INFORMATION
  Report Type: Spontaneous
  Country: GB (occurrence: GB)
  Receive Date: 20131111
  Receipt Date: 20131111
  Transmission Date: 20140711
  Serious: Yes (Hospitalization)
  Sender: FDA-Public Use
  Company Number: GB-NOVOPROD-391332

PATIENT
  Age: 60 Year
  Sex: Female

DRUGS (1)
  1. NOVOMIX 30 PENFILL [Suspect]
     Indication: DIABETES MELLITUS
     Dosage: 40 U QD; (22 IN THE MORNING, 18 AT NIGHT)
     Route: 058

REACTIONS (4)
  - Diarrhoea [Not Recovered/Not Resolved]
  - Drug ineffective [Recovered/Resolved]
  - Blood glucose increased [Recovered/Resolved]
  - Product quality issue [Unknown]
